FAERS Safety Report 5286831-7 (Version None)
Quarter: 2007Q2

REPORT INFORMATION
  Report Type: 
  Country: None (occurrence: None)
  Receive Date: 20070404
  Receipt Date: 20070323
  Transmission Date: 20071010
  Serious: Yes (Hospitalization)
  Sender: FDA-Public Use
  Company Number: CH-ROCHE-489578

PATIENT
  Age: 40 Year
  Sex: Male
  Weight: 64.2 kg

DRUGS (10)
  1. ROCEPHIN [Suspect]
     Route: 041
     Dates: start: 20070203, end: 20070209
  2. SOLU-MEDROL [Concomitant]
     Route: 041
     Dates: start: 20070204, end: 20070210
  3. CLEXANE [Concomitant]
     Route: 058
     Dates: start: 20070203, end: 20070215
  4. SERESTA [Concomitant]
     Route: 048
     Dates: start: 20070203
  5. METHADONE HCL [Concomitant]
     Route: 048
     Dates: start: 20061001
  6. DAFALGAN [Concomitant]
     Route: 048
     Dates: start: 20070203, end: 20070215
  7. NEXIUM [Concomitant]
     Route: 048
     Dates: start: 20070203, end: 20070209
  8. TRAMADOL HCL [Concomitant]
     Route: 048
     Dates: start: 20070203
  9. KONAKION [Concomitant]
     Route: 048
     Dates: start: 20070203, end: 20070206
  10. FLAGYL [Concomitant]
     Dosage: SINGLE DOSE OF 500 MG ON 03 FEBRUARY 2007 FOLLOWED BY 500 MG THREE TIMES PER DAY.
     Route: 048
     Dates: start: 20070203, end: 20070209

REACTIONS (1)
  - RAYNAUD'S PHENOMENON [None]
